FAERS Safety Report 7768630-7 (Version None)
Quarter: 2011Q3

REPORT INFORMATION
  Report Type: 
  Country: None (occurrence: None)
  Receive Date: 20110922
  Receipt Date: 20110105
  Transmission Date: 20111222
  Serious: No
  Sender: FDA-Public Use
  Company Number: US-ASTRAZENECA-2011SE01602

PATIENT
  Age: 22 Year
  Sex: Male

DRUGS (1)
  1. SEROQUEL [Suspect]
     Indication: BIPOLAR DISORDER
     Route: 048

REACTIONS (6)
  - DISTURBANCE IN SEXUAL AROUSAL [None]
  - FEELING ABNORMAL [None]
  - EJACULATION FAILURE [None]
  - FATIGUE [None]
  - DRY MOUTH [None]
  - INCREASED APPETITE [None]
